FAERS Safety Report 4293511-3 (Version None)
Quarter: 2004Q1

REPORT INFORMATION
  Report Type: 
  Country: None (occurrence: None)
  Receive Date: 20040210
  Receipt Date: 20040129
  Transmission Date: 20041129
  Serious: Yes (Hospitalization)
  Sender: FDA-Public Use
  Company Number: 04P-008-0249248-00

PATIENT
  Age: 16 Year
  Sex: Female

DRUGS (5)
  1. VALPROATE SODIUM [Suspect]
     Indication: CONVULSION
     Dosage: SEE IMAGE
  2. MEROPENEM (MEROPENEM) [Suspect]
     Indication: SEPSIS
  3. VIGABATRIN [Concomitant]
  4. GABAPENTIN [Concomitant]
  5. URSODEOXYCHOLIC ACID [Concomitant]

REACTIONS (10)
  - AMPUTATION [None]
  - ANTICONVULSANT DRUG LEVEL BELOW THERAPEUTIC [None]
  - BACTERIAL INFECTION [None]
  - BACTERIAL SEPSIS [None]
  - COAGULOPATHY [None]
  - CONVULSION [None]
  - DRUG INTERACTION [None]
  - PERIPHERAL ISCHAEMIA [None]
  - POST PROCEDURAL HAEMORRHAGE [None]
  - RENAL FAILURE [None]
